FAERS Safety Report 5769684-X (Version None)
Quarter: 2008Q2

REPORT INFORMATION
  Report Type: 
  Country: None (occurrence: None)
  Receive Date: 20080612
  Receipt Date: 20080404
  Transmission Date: 20081010
  Serious: No
  Sender: FDA-Public Use
  Company Number: US-ABBOTT-08P-163-0445781-00

PATIENT
  Sex: Female
  Weight: 77.18 kg

DRUGS (14)
  1. HUMIRA [Suspect]
     Indication: COLITIS ULCERATIVE
     Route: 058
     Dates: start: 20071201, end: 20080330
  2. HUMIRA [Suspect]
     Dosage: WEEKLY DOSING
     Route: 058
     Dates: start: 20080330
  3. MESALAMINE [Concomitant]
     Indication: COLITIS ULCERATIVE
     Route: 048
  4. METFORMIN HCL [Concomitant]
     Indication: DIABETES MELLITUS
     Route: 048
  5. ROMATEL [Concomitant]
     Indication: ARTHRALGIA
     Route: 048
  6. VICODIN [Concomitant]
     Indication: FIBROMYALGIA
     Route: 048
  7. ATRIPEL [Concomitant]
     Indication: HYPERTENSION
     Route: 048
  8. VESTROL [Concomitant]
     Indication: BLOOD CHOLESTEROL INCREASED
     Route: 048
  9. METOPROLOL [Concomitant]
     Indication: HYPERTENSION
     Route: 048
  10. ALPRAZOLAM [Concomitant]
     Indication: ANXIETY
     Route: 048
  11. CLONAZEPAM [Concomitant]
     Indication: ANXIETY
     Route: 048
  12. TIZANIDINE HYDROCHLORIDE [Concomitant]
     Indication: FIBROMYALGIA
     Route: 048
  13. SERETIDE [Concomitant]
     Indication: ASTHMA
     Route: 048
  14. SALBUTAMOL SULFATE [Concomitant]
     Indication: ASTHMA
     Route: 055

REACTIONS (3)
  - ABDOMINAL PAIN [None]
  - RECTAL HAEMORRHAGE [None]
  - STOMACH DISCOMFORT [None]
